FAERS Safety Report 4730624-3 (Version None)
Quarter: 2005Q3

REPORT INFORMATION
  Report Type: 
  Country: None (occurrence: None)
  Receive Date: 20050801
  Receipt Date: 20050606
  Transmission Date: 20060218
  Serious: Yes (Other)
  Sender: FDA-Public Use
  Company Number: JP-SOLVAY-00305001938

PATIENT
  Age: 177 Month
  Sex: Female

DRUGS (11)
  1. LUVOX [Suspect]
     Indication: OBSESSIVE-COMPULSIVE DISORDER
     Dosage: DAILY DOSE: 50 MILLIGRAM(S)
     Route: 048
     Dates: start: 20050226, end: 20050304
  2. LUVOX [Suspect]
     Dosage: DAILY DOSE: 100 MILLIGRAM(S)
     Route: 048
     Dates: start: 20050305, end: 20050311
  3. LUVOX [Suspect]
     Dosage: DAILY DOSE: 150 MILLIGRAM(S)
     Route: 048
     Dates: start: 20050312, end: 20050422
  4. LUVOX [Suspect]
     Dosage: DAILY DOSE: 125 MILLIGRAM(S)
     Route: 048
     Dates: start: 20050423, end: 20050513
  5. LUVOX [Suspect]
     Dosage: DAILY DOSE: 100 MILLIGRAM(S)
     Route: 048
     Dates: start: 20050514, end: 20050528
  6. LORAZEPAM [Concomitant]
     Indication: OBSESSIVE-COMPULSIVE DISORDER
     Dosage: DAILY DOSE: 1.5 MILLIGRAM(S)
     Route: 048
     Dates: start: 20050226, end: 20050401
  7. LORAZEPAM [Concomitant]
     Dosage: DAILY DOSE: 1 MILLIGRAM(S)
     Route: 048
     Dates: start: 20050402, end: 20050528
  8. LORAZEPAM [Concomitant]
     Dosage: DAILY DOSE: 1 MILLIGRAM(S)
     Route: 048
     Dates: start: 20050604, end: 20050606
  9. LORAZEPAM [Concomitant]
     Dosage: DAILY DOSE: 1 MILLIGRAM(S)
     Route: 048
     Dates: start: 20050611, end: 20050624
  10. LORAZEPAM [Concomitant]
     Dosage: DAILY DOSE: 1.5 MILLIGRAM(S)
     Route: 048
     Dates: start: 20050625
  11. NAUZELIN [Concomitant]
     Indication: ILL-DEFINED DISORDER
     Dosage: DAILY DOSE: 20 MILLIGRAM(S)
     Route: 048
     Dates: start: 20050226, end: 20050304

REACTIONS (7)
  - CHEST DISCOMFORT [None]
  - CONDITION AGGRAVATED [None]
  - DYSTONIA [None]
  - MALAISE [None]
  - OBSESSIVE-COMPULSIVE DISORDER [None]
  - OCULOGYRATION [None]
  - SOMNOLENCE [None]
